FAERS Safety Report 16113350 (Version 2)
Quarter: 2019Q2

REPORT INFORMATION
  Report Type: Spontaneous
  Country: US (occurrence: US)
  Receive Date: 20190325
  Receipt Date: 20190520
  Transmission Date: 20190711
  Serious: No
  Sender: FDA-Public Use
  Company Number: US-PFIZER INC-2019123220

PATIENT
  Sex: Female

DRUGS (2)
  1. EUCRISA [Suspect]
     Active Substance: CRISABOROLE
     Indication: SKIN LESION
     Dosage: UNK UNK, 2X/DAY (USED ON AFFECTED AREAS OF SKIN ON BODY)
     Route: 061
     Dates: end: 20190308
  2. EUCRISA [Suspect]
     Active Substance: CRISABOROLE
     Indication: DERMATITIS ATOPIC

REACTIONS (1)
  - Sensory disturbance [Recovered/Resolved]

NARRATIVE: CASE EVENT DATE: 20190308
